FAERS Safety Report 25264118 (Version 1)
Quarter: 2025Q2

REPORT INFORMATION
  Report Type: Spontaneous
  Country: BE (occurrence: BE)
  Receive Date: 20250502
  Receipt Date: 20250502
  Transmission Date: 20250716
  Serious: Yes (Death)
  Sender: OTSUKA
  Company Number: SE-MMM-Otsuka-561I3U4Z

PATIENT
  Age: 27 Year
  Sex: Male

DRUGS (1)
  1. ABILIFY [Suspect]
     Active Substance: ARIPIPRAZOLE
     Indication: Schizophrenia
     Route: 048
     Dates: end: 2024

REACTIONS (2)
  - Diabetes mellitus [Fatal]
  - Weight increased [Fatal]

NARRATIVE: CASE EVENT DATE: 20200101
